FAERS Safety Report 4984855-8 (Version None)
Quarter: 2006Q2

REPORT INFORMATION
  Report Type: 
  Country: None (occurrence: None)
  Receive Date: 20060427
  Receipt Date: 20060418
  Transmission Date: 20061013
  Serious: Yes (Hospitalization)
  Sender: FDA-Public Use
  Company Number: JP-ROCHE-444658

PATIENT
  Age: 71 Year
  Sex: Male
  Weight: 76.5 kg

DRUGS (1)
  1. PANALDINE [Suspect]
     Dosage: OTHER INDICATION: UNSTABLE ANGINA PECTORIS.
     Route: 048
     Dates: start: 20011015

REACTIONS (5)
  - ARTERIAL OCCLUSIVE DISEASE [None]
  - BLUE TOE SYNDROME [None]
  - INTESTINAL ISCHAEMIA [None]
  - MELAENA [None]
  - POST PROCEDURAL COMPLICATION [None]
